FAERS Safety Report 25642386 (Version 1)
Quarter: 2025Q3

REPORT INFORMATION
  Report Type: Spontaneous
  Country: EU (occurrence: EU)
  Receive Date: 20250805
  Receipt Date: 20250805
  Transmission Date: 20251020
  Serious: Yes (Hospitalization, Other)
  Sender: NOVO NORDISK
  Company Number: EU-NOVOPROD-1489787

PATIENT
  Age: 372 Month
  Sex: Female
  Weight: 42.6 kg

DRUGS (5)
  1. NORDITROPIN [Suspect]
     Active Substance: SOMATROPIN
     Indication: Growth hormone deficiency
     Route: 058
     Dates: start: 20150717
  2. NORDITROPIN [Suspect]
     Active Substance: SOMATROPIN
     Indication: Central hypothyroidism
  3. NORDITROPIN [Suspect]
     Active Substance: SOMATROPIN
     Indication: Hypopituitarism
  4. NORDITROPIN [Suspect]
     Active Substance: SOMATROPIN
     Indication: Medulloblastoma
  5. NORDITROPIN [Suspect]
     Active Substance: SOMATROPIN
     Indication: Blood corticotrophin decreased

REACTIONS (2)
  - Pneumonia [Recovered/Resolved]
  - Fall [Recovered/Resolved]

NARRATIVE: CASE EVENT DATE: 20221001
